FAERS Safety Report 6640814-0 (Version None)
Quarter: 2010Q1

REPORT INFORMATION
  Report Type: 
  Country: None (occurrence: None)
  Receive Date: 20100302
  Receipt Date: 20100108
  Transmission Date: 20100710
  Serious: No
  Sender: FDA-Public Use
  Company Number: 2010003618

PATIENT
  Age: 66 Year
  Sex: Female
  Weight: 65.8 kg

DRUGS (7)
  1. TOVIAZ [Suspect]
     Indication: HYPERTONIC BLADDER
     Dosage: 4 MG, 1X/DAY ; 8 MG, 1X/DAY, ORAL
     Route: 048
     Dates: start: 20070101
  2. CRESTOR [Concomitant]
  3. LEVOXYL [Concomitant]
  4. CELEBREX [Concomitant]
  5. BUSPAR [Concomitant]
  6. INSULIN (INSULIN) [Concomitant]
  7. UNIRETIC (HYDROCHLOROTHIAZIDE, MOEXIPRIL HYDROCHLORIDE) [Concomitant]

REACTIONS (2)
  - DRUG INEFFECTIVE [None]
  - PARAESTHESIA [None]
